FAERS Safety Report 8232788-6 (Version None)
Quarter: 2012Q1

REPORT INFORMATION
  Report Type: 
  Country: None (occurrence: None)
  Receive Date: 20120323
  Receipt Date: 20120315
  Transmission Date: 20120608
  Serious: Yes (Hospitalization, Disabling, Other)
  Sender: FDA-Public Use
  Company Number: US-MERCK-1111USA02477

PATIENT
  Age: 56 Year
  Sex: Female
  Weight: 80 kg

DRUGS (6)
  1. FOSAMAX [Suspect]
     Route: 048
     Dates: start: 20071002
  2. FOSAMAX [Suspect]
     Indication: OSTEOPENIA
     Route: 048
     Dates: start: 20030626, end: 20050901
  3. FOSAMAX [Suspect]
     Indication: OSTEOPOROSIS
     Route: 048
     Dates: start: 20030626, end: 20050901
  4. FOSAMAX [Suspect]
     Route: 048
     Dates: start: 20071002
  5. BONIVA [Suspect]
     Indication: OSTEOPOROSIS
     Route: 048
     Dates: start: 20050907
  6. VIVELLE [Concomitant]
     Indication: HORMONE REPLACEMENT THERAPY
     Route: 065

REACTIONS (39)
  - INTERVERTEBRAL DISC PROTRUSION [None]
  - IMPAIRED HEALING [None]
  - HYPERPARATHYROIDISM [None]
  - WEIGHT INCREASED [None]
  - ORAL INFECTION [None]
  - BODY HEIGHT DECREASED [None]
  - DENTAL CARIES [None]
  - HEADACHE [None]
  - SALIVARY GLAND MASS [None]
  - ANAEMIA [None]
  - BACK DISORDER [None]
  - FEMORAL NECK FRACTURE [None]
  - HYPOAESTHESIA ORAL [None]
  - SKIN DISORDER [None]
  - OSTEONECROSIS OF JAW [None]
  - FALL [None]
  - HIP FRACTURE [None]
  - HAEMATOCHEZIA [None]
  - BURSITIS [None]
  - CONSTIPATION [None]
  - ADVERSE EVENT [None]
  - GALLBLADDER DISORDER [None]
  - OSTEOARTHRITIS [None]
  - ABSCESS [None]
  - ARTHRITIS [None]
  - VITAMIN B12 DEFICIENCY [None]
  - COLON ADENOMA [None]
  - LACERATION [None]
  - WEIGHT DECREASED [None]
  - TOOTH DISORDER [None]
  - DIZZINESS [None]
  - FISTULA DISCHARGE [None]
  - HERPES ZOSTER [None]
  - ARTHRALGIA [None]
  - TEMPOROMANDIBULAR JOINT SYNDROME [None]
  - PINEAL GLAND CYST [None]
  - FATIGUE [None]
  - CHEST DISCOMFORT [None]
  - ADENOIDAL DISORDER [None]
